FAERS Safety Report 14205372 (Version 1)
Quarter: 2017Q4

REPORT INFORMATION
  Report Type: Spontaneous
  Country: US (occurrence: US)
  Receive Date: 20171120
  Receipt Date: 20171120
  Transmission Date: 20180321
  Serious: No
  Sender: FDA-Public Use
  Company Number: US-MYLANLABS-2017M1068913

PATIENT
  Sex: Female

DRUGS (1)
  1. MYLAN-ATENOLOL [Suspect]
     Active Substance: ATENOLOL
     Indication: EPINEPHRINE ABNORMAL
     Dosage: 25 MG, UNK
     Route: 048

REACTIONS (2)
  - No adverse event [Unknown]
  - Off label use [Not Recovered/Not Resolved]
